FAERS Safety Report 25647558 (Version 2)
Quarter: 2025Q3

REPORT INFORMATION
  Report Type: Spontaneous
  Country: EG (occurrence: EG)
  Receive Date: 20250806
  Receipt Date: 20250814
  Transmission Date: 20251020
  Serious: Yes (Other)
  Sender: NOVO NORDISK
  Company Number: EG-NOVOPROD-1480078

PATIENT
  Age: 781 Month
  Sex: Female

DRUGS (6)
  1. XANTHIUM [Concomitant]
     Indication: Product used for unknown indication
     Route: 048
  2. ROSUVASTATIN CALCIUM [Concomitant]
     Active Substance: ROSUVASTATIN CALCIUM
     Indication: Blood cholesterol abnormal
     Route: 048
  3. BISOPROLOL FUMARATE [Concomitant]
     Active Substance: BISOPROLOL FUMARATE
     Indication: Hypertension
     Route: 048
  4. ESMATAC [Concomitant]
     Indication: Product used for unknown indication
     Route: 048
  5. NOVORAPID [Suspect]
     Active Substance: INSULIN ASPART
     Indication: Diabetes mellitus
     Dosage: 60 IU, QD (25U, 20 U AND 15U)/ DAY
     Route: 058
  6. ASPIRIN [Concomitant]
     Active Substance: ASPIRIN
     Indication: Anticoagulant therapy
     Route: 048

REACTIONS (4)
  - Thyroid cyst [Unknown]
  - Benign neoplasm of thyroid gland [Unknown]
  - Diabetes mellitus inadequate control [Unknown]
  - Off label use [Unknown]
